FAERS Safety Report 8440304-9 (Version None)
Quarter: 2012Q2

REPORT INFORMATION
  Report Type: 
  Country: None (occurrence: None)
  Receive Date: 20120615
  Receipt Date: 20120608
  Transmission Date: 20120825
  Serious: Yes (Other)
  Sender: FDA-Public Use
  Company Number: CO-ROCHE-1078636

PATIENT
  Sex: Female

DRUGS (2)
  1. LUCENTIS [Suspect]
     Indication: RETINAL DETACHMENT
     Route: 050
     Dates: start: 20111101
  2. VITALUX [Suspect]
     Indication: HYPOVITAMINOSIS
     Route: 048
     Dates: start: 20111201

REACTIONS (3)
  - VISION BLURRED [None]
  - VISUAL ACUITY REDUCED [None]
  - DRUG INEFFECTIVE [None]
